FAERS Safety Report 6099897-1 (Version None)
Quarter: 2009Q1

REPORT INFORMATION
  Report Type: 
  Country: None (occurrence: None)
  Receive Date: 20090303
  Receipt Date: 20090220
  Transmission Date: 20090719
  Serious: Yes (Hospitalization)
  Sender: FDA-Public Use
  Company Number: CH-TEVA-186052ISR

PATIENT
  Age: 63 Year
  Sex: Female

DRUGS (8)
  1. CARVEDILOL [Suspect]
     Route: 048
     Dates: start: 20080601, end: 20081203
  2. AMIODARONE HCL [Suspect]
     Route: 048
     Dates: start: 20080601, end: 20081206
  3. ALISKIREN [Suspect]
     Route: 048
     Dates: start: 20080601, end: 20081203
  4. ALDACTONE-SALTUCIN [Suspect]
     Indication: CARDIAC FAILURE CONGESTIVE
     Route: 048
     Dates: start: 20050101, end: 20081203
  5. ANASTROZOLE [Suspect]
     Indication: BREAST CANCER
     Route: 048
     Dates: start: 20030101, end: 20081203
  6. HYDROXYCARBAMIDE [Suspect]
     Indication: MYELOPROLIFERATIVE DISORDER
     Route: 048
     Dates: start: 19980101, end: 20081203
  7. ACENOCOUMAROL [Concomitant]
     Indication: MYELOPROLIFERATIVE DISORDER
     Route: 048
     Dates: start: 19980101
  8. OMEPRAZOLE [Concomitant]
     Route: 048
     Dates: start: 19980101

REACTIONS (3)
  - ATRIOVENTRICULAR BLOCK [None]
  - CHOLESTASIS [None]
  - HEPATITIS CHOLESTATIC [None]
